FAERS Safety Report 18382355 (Version 2)
Quarter: 2020Q4

REPORT INFORMATION
  Report Type: Spontaneous
  Country: US (occurrence: US)
  Receive Date: 20201014
  Receipt Date: 20201019
  Transmission Date: 20210114
  Serious: No
  Sender: FDA-Public Use
  Company Number: US-009507513-2010USA004563

PATIENT
  Sex: Female

DRUGS (1)
  1. NEXPLANON [Suspect]
     Active Substance: ETONOGESTREL
     Dosage: UNK
     Route: 059
     Dates: start: 20200529, end: 20201009

REACTIONS (5)
  - Apathy [Unknown]
  - Depression [Unknown]
  - Contusion [Unknown]
  - Skin discolouration [Unknown]
  - Tenderness [Unknown]

NARRATIVE: CASE EVENT DATE: 2020
